FAERS Safety Report 12088333 (Version 1)
Quarter: 2016Q1

REPORT INFORMATION
  Report Type: Spontaneous
  Country: US (occurrence: None)
  Receive Date: 20160216
  Receipt Date: 20160216
  Transmission Date: 20160526
  Serious: Yes (Other)
  Sender: FDA-Public Use
  Company Number: None

PATIENT
  Age: 64 Year
  Sex: Female
  Weight: 62.6 kg

DRUGS (1)
  1. OMEPRAZOLE 20MG [Suspect]
     Active Substance: OMEPRAZOLE
     Indication: LARYNGITIS
     Dosage: 1 PILL ONCE DAILY TAKEN BY MOUTH
     Route: 048
     Dates: start: 20160210, end: 20160211

REACTIONS (4)
  - Arthralgia [None]
  - Pain [None]
  - Crying [None]
  - Skin exfoliation [None]

NARRATIVE: CASE EVENT DATE: 20160211
